FAERS Safety Report 7850158-7 (Version None)
Quarter: 2011Q4

REPORT INFORMATION
  Report Type: 
  Country: None (occurrence: None)
  Receive Date: 20111026
  Receipt Date: 20111013
  Transmission Date: 20120403
  Serious: Yes (Other)
  Sender: FDA-Public Use
  Company Number: US-BAYER-2010-004844

PATIENT
  Age: 48 Year
  Sex: Female
  Weight: 63.492 kg

DRUGS (10)
  1. TRIAMCINOLONE [Concomitant]
     Dosage: UNK
     Route: 061
     Dates: start: 20081030
  2. KLONOPIN [Concomitant]
     Dosage: 0.5 MG, BID
     Route: 048
     Dates: start: 20081030
  3. YAZ [Suspect]
     Indication: PREMENSTRUAL SYNDROME
  4. YAZ [Suspect]
     Indication: ACNE
     Dosage: UNK
     Dates: start: 20071201, end: 20090601
  5. YAZ [Suspect]
  6. BACTRIM DS [Concomitant]
     Dosage: UNK UNK, BID
     Route: 048
     Dates: start: 20081002
  7. VISTARIL [Concomitant]
     Dosage: 25 MG, TID
     Route: 048
     Dates: start: 20081002
  8. MEDROL [Concomitant]
     Dosage: UNK
     Route: 048
     Dates: start: 20081002
  9. BACTROBAN [Concomitant]
     Dosage: UNK
     Route: 061
     Dates: start: 20081030
  10. DIFLUCAN [Concomitant]
     Dosage: 200 MG, UNK
     Route: 048
     Dates: start: 20081030

REACTIONS (4)
  - PAIN [None]
  - THROMBOPHLEBITIS [None]
  - INJURY [None]
  - DEEP VEIN THROMBOSIS [None]
